FAERS Safety Report 6442620-9 (Version None)
Quarter: 2009Q4

REPORT INFORMATION
  Report Type: 
  Country: None (occurrence: None)
  Receive Date: 20091117
  Receipt Date: 20091109
  Transmission Date: 20100525
  Serious: Yes (Other)
  Sender: FDA-Public Use
  Company Number: GR-EISAI INC.-E2020-05544-SPO-GR

PATIENT
  Age: 60 Year
  Sex: Male

DRUGS (4)
  1. ARICEPT [Suspect]
     Indication: DEMENTIA
     Route: 048
     Dates: start: 20090701, end: 20090701
  2. TRILEPTAL [Concomitant]
     Indication: EPILEPSY
     Route: 048
     Dates: start: 20040101
  3. EPANUTIN 100 [Concomitant]
     Indication: EPILEPSY
     Route: 048
     Dates: start: 20040101
  4. ADOVIA [Concomitant]
     Route: 048
     Dates: start: 20040101

REACTIONS (1)
  - LARYNGEAL OEDEMA [None]
